FAERS Safety Report 11147181 (Version 1)
Quarter: 2015Q2

REPORT INFORMATION
  Report Type: Report from Study
  Country: US (occurrence: US)
  Receive Date: 20150528
  Receipt Date: 20150528
  Transmission Date: 20150821
  Serious: Yes (Hospitalization, Other)
  Sender: FDA-Public Use
  Company Number: US-GILEAD-2015-0155164

PATIENT
  Age: 55 Year
  Sex: Male

DRUGS (1)
  1. RANOLAZINE [Suspect]
     Active Substance: RANOLAZINE
     Indication: ARTERIOSCLEROSIS CORONARY ARTERY
     Dosage: 500 MG, UNK
     Route: 048

REACTIONS (4)
  - Angina pectoris [Unknown]
  - Cardiac failure [Unknown]
  - Coronary artery disease [Unknown]
  - Off label use [Unknown]
